FAERS Safety Report 7457070-6 (Version None)
Quarter: 2011Q2

REPORT INFORMATION
  Report Type: 
  Country: None (occurrence: None)
  Receive Date: 20110504
  Receipt Date: 20110420
  Transmission Date: 20111010
  Serious: Yes (Hospitalization)
  Sender: FDA-Public Use
  Company Number: JP-JNJFOC-20110407016

PATIENT
  Sex: Male
  Weight: 51 kg

DRUGS (10)
  1. REMICADE [Suspect]
     Dosage: 5 INFUSION ON AN UNKNOWN DATE
     Route: 042
  2. GASMOTIN [Suspect]
     Indication: ABDOMINAL DISTENSION
     Route: 048
  3. REMICADE [Suspect]
     Route: 042
  4. REMICADE [Suspect]
     Route: 042
  5. REMICADE [Suspect]
     Indication: CROHN'S DISEASE
     Route: 042
  6. REMICADE [Suspect]
     Route: 042
  7. DAI-KENCHU-TO [Suspect]
     Indication: ABDOMINAL DISTENSION
     Dosage: 7.5 GM / DAY
     Route: 048
  8. RACOL [Suspect]
     Indication: NUTRITIONAL SUPPORT
     Route: 048
  9. SLOW FE [Suspect]
     Indication: ANAEMIA
     Route: 048
  10. CINAL [Suspect]
     Indication: ANAEMIA PROPHYLAXIS
     Route: 048

REACTIONS (3)
  - PANCYTOPENIA [None]
  - DIZZINESS [None]
  - GENERAL PHYSICAL HEALTH DETERIORATION [None]
